FAERS Safety Report 10441420 (Version 5)
Quarter: 2014Q4

REPORT INFORMATION
  Report Type: Report from Study
  Country: JP (occurrence: JP)
  Receive Date: 20140909
  Receipt Date: 20141030
  Transmission Date: 20150528
  Serious: Yes (Hospitalization)
  Sender: FDA-Public Use
  Company Number: JP-ASTRAZENECA-2014SE66324

PATIENT
  Age: 85 Year
  Sex: Male
  Weight: 72 kg

DRUGS (12)
  1. ZOLADEX [Suspect]
     Active Substance: GOSERELIN ACETATE
     Indication: PROSTATE CANCER
     Route: 058
     Dates: start: 20140512, end: 20140811
  2. NORVASC [Concomitant]
     Active Substance: AMLODIPINE BESYLATE
     Indication: HYPERTENSION
     Dosage: 2.5 MG EVERY DAY, AFTER EVENING MEAL
     Route: 048
     Dates: start: 20100526
  3. GASCON [Concomitant]
     Active Substance: DIMETHICONE
     Indication: DYSCHEZIA
     Dosage: 80 MG THREE TIMES A DAY, AFTER EVERY MEAL.
     Route: 048
     Dates: start: 20071003
  4. PANTHELIN [Concomitant]
     Indication: BACK PAIN
     Dosage: AS REQUIRED
     Route: 062
     Dates: start: 20140703
  5. MUCODYNE [Concomitant]
     Active Substance: CARBOCYSTEINE
     Indication: PRODUCTIVE COUGH
     Dosage: 250 MG THREE TIMES A DAY, AFTER EVERY MEAL.
     Route: 048
     Dates: start: 20041120
  6. HARNAL [Concomitant]
     Active Substance: TAMSULOSIN HYDROCHLORIDE
     Indication: BENIGN PROSTATIC HYPERPLASIA
     Dosage: AFTER BREAKFAST, 0.2 MG DAILY
     Route: 048
     Dates: start: 20101226
  7. GASMOTIN [Concomitant]
     Active Substance: MOSAPRIDE CITRATE
     Indication: GASTROOESOPHAGEAL REFLUX DISEASE
     Dosage: 5 MG THREE TIMES A DAY, AFTER EVERY MEAL.
     Route: 048
     Dates: start: 20071026
  8. ALOSITOL [Concomitant]
     Active Substance: ALLOPURINOL
     Indication: HYPERURICAEMIA
     Dosage: AFTER BREAKFAST, 100 MG DAILY
     Route: 048
     Dates: start: 19991019
  9. ZOLADEX [Suspect]
     Active Substance: GOSERELIN ACETATE
     Indication: PROSTATE CANCER
     Route: 058
     Dates: start: 20140414
  10. PARIET [Concomitant]
     Active Substance: RABEPRAZOLE SODIUM
     Indication: GASTROOESOPHAGEAL REFLUX DISEASE
     Dosage: 10 MG EVERY DAY, AFTER EVENING MEAL
     Route: 048
     Dates: start: 20070728
  11. LOXONIN [Concomitant]
     Active Substance: LOXOPROFEN SODIUM
     Indication: BACK PAIN
     Dosage: AS REQUIRED
     Route: 048
     Dates: start: 20140703
  12. VOLTAREN [Concomitant]
     Active Substance: DICLOFENAC SODIUM
     Indication: BACK PAIN
     Dosage: 25 MG - 50 MG DAILY, ONE TO TWO TIMES DAILY
     Route: 054
     Dates: start: 20140721

REACTIONS (5)
  - Aortic aneurysm [Not Recovered/Not Resolved]
  - Renal infarct [Not Recovered/Not Resolved]
  - Splenic infarction [Not Recovered/Not Resolved]
  - Spinal column stenosis [Recovering/Resolving]
  - Decreased appetite [Not Recovered/Not Resolved]

NARRATIVE: CASE EVENT DATE: 20140703
